FAERS Safety Report 9522980 (Version 1)
Quarter: 2013Q1

REPORT INFORMATION
  Report Type: Spontaneous
  Country: US (occurrence: None)
  Receive Date: 20130305
  Receipt Date: 20130305
  Transmission Date: 20140127
  Serious: Yes (Hospitalization, Other)
  Sender: FDA-Public Use
  Company Number: 163-21880-12031882

PATIENT
  Age: 52 Year
  Sex: Male

DRUGS (6)
  1. REVLIMID [Suspect]
     Indication: PLASMA CELL MYELOMA
     Dosage: 21 IN 28 D
     Route: 048
     Dates: start: 20110509, end: 201109
  2. DEXAMETHASONE (DEXAMETHASONE) [Concomitant]
  3. ZANTAC (RANITIDINE HYDROCHLORIDE) [Concomitant]
  4. PAXIL (PAROXETINE HYDROCHLORIDE) [Concomitant]
  5. OXYCODONE (OXYCODONE) [Concomitant]
  6. LORAZEPAM (LORAZEPAM) [Concomitant]

REACTIONS (5)
  - Cholecystitis infective [None]
  - Pancytopenia [None]
  - Bacterial sepsis [None]
  - Herpes zoster [None]
  - Febrile neutropenia [None]
